FAERS Safety Report 14114521 (Version 1)
Quarter: 2017Q4

REPORT INFORMATION
  Report Type: Spontaneous
  Country: US (occurrence: US)
  Receive Date: 20171023
  Receipt Date: 20171023
  Transmission Date: 20180321
  Serious: No
  Sender: FDA-Public Use
  Company Number: US-PFIZER INC-2017453241

PATIENT
  Age: 57 Year
  Sex: Female

DRUGS (1)
  1. BOSULIF [Suspect]
     Active Substance: BOSUTINIB MONOHYDRATE
     Dosage: 1000 MG, DAILY
     Route: 048

REACTIONS (2)
  - Diarrhoea [Unknown]
  - Accidental overdose [Unknown]

NARRATIVE: CASE EVENT DATE: 20171016
